FAERS Safety Report 20730496 (Version 1)
Quarter: 2022Q2

REPORT INFORMATION
  Report Type: Spontaneous
  Country: CH (occurrence: CH)
  Receive Date: 20220420
  Receipt Date: 20220420
  Transmission Date: 20220720
  Serious: Yes (Hospitalization)
  Sender: FDA-Public Use
  Company Number: CH-MYLANLABS-2022M1028675

PATIENT
  Age: 60 Year
  Sex: Male

DRUGS (10)
  1. FLUOROURACIL [Suspect]
     Active Substance: FLUOROURACIL
     Indication: Colon cancer metastatic
     Dosage: FOLFOX TREATMENT SCHEDULED TO RECEIVE FROM MONTHS 15-17
     Route: 065
  2. FLUOROURACIL [Suspect]
     Active Substance: FLUOROURACIL
     Dosage: FOLFIRI TREATMENT SCHEDULED TO RECEIVE DURING MONTH 18
     Route: 065
  3. OXALIPLATIN [Suspect]
     Active Substance: OXALIPLATIN
     Indication: Colon cancer metastatic
     Dosage: XELOX TREATMENT SCHEDULED TO RECEIVE FROM MONTHS 2-5
     Route: 065
  4. OXALIPLATIN [Suspect]
     Active Substance: OXALIPLATIN
     Dosage: FOLFOX TREATMENT SCHEDULED TO RECEIVE FROM MONTHS 15-17
     Route: 065
  5. CAPECITABINE [Suspect]
     Active Substance: CAPECITABINE
     Indication: Colon cancer metastatic
     Dosage: XELOX TREATMENT RECEIVED FROM MONTHS 2-5
     Route: 065
  6. LEUCOVORIN [Suspect]
     Active Substance: LEUCOVORIN
     Indication: Colon cancer metastatic
     Dosage: FOLFOX TREATMENT SCHEDULED TO RECEIVE FROM MONTHS 15-17
     Route: 065
  7. LEUCOVORIN [Suspect]
     Active Substance: LEUCOVORIN
     Dosage: FOLFIRI TREATMENT SCHEDULED TO RECEIVE DURING MONTH 18
     Route: 065
  8. BEVACIZUMAB [Suspect]
     Active Substance: BEVACIZUMAB
     Indication: Colon cancer metastatic
     Dosage: TREATMENT SCHEDULED TO RECEIVE DURING MONTHS 15-17
     Route: 065
  9. IRINOTECAN [Suspect]
     Active Substance: IRINOTECAN
     Indication: Colon cancer metastatic
     Dosage: FOLFIRI TREATMENT SCHEDULED TO RECEIVE DURING MONTH 18
     Route: 065
  10. AFLIBERCEPT [Suspect]
     Active Substance: AFLIBERCEPT
     Indication: Colon cancer metastatic
     Dosage: TREATMENT SCHEDULED TO RECEIVE DURING MONTH 18
     Route: 065

REACTIONS (3)
  - Disease progression [Unknown]
  - Febrile neutropenia [Unknown]
  - Adverse event [Unknown]
